FAERS Safety Report 17451677 (Version 1)
Quarter: 2020Q1

REPORT INFORMATION
  Report Type: Spontaneous
  Country: US (occurrence: US)
  Receive Date: 20200224
  Receipt Date: 20200224
  Transmission Date: 20200409
  Serious: Yes (Other)
  Sender: FDA-Public Use
  Company Number: None

PATIENT
  Age: 27 Year
  Sex: Male
  Weight: 87.75 kg

DRUGS (1)
  1. FINASTERIDE. [Suspect]
     Active Substance: FINASTERIDE
     Indication: ALOPECIA
     Dosage: ?          QUANTITY:1 TABLET(S);?
     Route: 048
     Dates: start: 20180621, end: 20180817

REACTIONS (5)
  - Mental impairment [None]
  - Libido decreased [None]
  - Erectile dysfunction [None]
  - Psychiatric symptom [None]
  - Suicidal ideation [None]

NARRATIVE: CASE EVENT DATE: 20180817
